FAERS Safety Report 21845406 (Version 1)
Quarter: 2023Q1

REPORT INFORMATION
  Report Type: Spontaneous
  Country: US (occurrence: US)
  Receive Date: 20230111
  Receipt Date: 20230111
  Transmission Date: 20230418
  Serious: Yes (Other)
  Sender: FDA-Public Use
  Company Number: US-SUN PHARMACEUTICAL INDUSTRIES LTD-2022R1-372251

PATIENT
  Age: 15 Year
  Sex: Male

DRUGS (2)
  1. SULINDAC [Suspect]
     Active Substance: SULINDAC
     Indication: Pain
     Dosage: 150 MILLIGRAM, BID
     Route: 065
  2. TAMOXIFEN [Suspect]
     Active Substance: TAMOXIFEN
     Indication: Pain
     Dosage: 120 MILLIGRAM(DIALY)
     Route: 065

REACTIONS (1)
  - Disease progression [Unknown]
